FAERS Safety Report 7266407-2 (Version None)
Quarter: 2011Q1

REPORT INFORMATION
  Report Type: 
  Country: None (occurrence: None)
  Receive Date: 20110131
  Receipt Date: 20110124
  Transmission Date: 20110831
  Serious: Yes (Other)
  Sender: FDA-Public Use
  Company Number: PL-PFIZER INC-2011004540

PATIENT
  Age: 7 Year
  Sex: Female

DRUGS (3)
  1. IDARUBICIN HCL [Suspect]
     Indication: ACUTE MYELOID LEUKAEMIA
     Dosage: UNK
  2. CYTARABINE [Suspect]
     Indication: ACUTE MYELOID LEUKAEMIA
     Dosage: UNK
  3. ETOPOSIDE [Suspect]
     Indication: ACUTE MYELOID LEUKAEMIA
     Dosage: UNK

REACTIONS (11)
  - PYREXIA [None]
  - PNEUMONIA [None]
  - NEOPLASM RECURRENCE [None]
  - ACUTE MYELOID LEUKAEMIA [None]
  - TRANSPLANT FAILURE [None]
  - PANCYTOPENIA [None]
  - GASTROINTESTINAL HAEMORRHAGE [None]
  - OTITIS MEDIA [None]
  - LIVER INJURY [None]
  - DIARRHOEA [None]
  - ENCEPHALOPATHY [None]
